FAERS Safety Report 16693546 (Version 1)
Quarter: 2019Q3

REPORT INFORMATION
  Report Type: Spontaneous
  Country: US (occurrence: US)
  Receive Date: 20190626
  Receipt Date: 20190626
  Transmission Date: 20191004
  Serious: Yes (Other)
  Sender: FDA-Public Use
  Company Number: None

PATIENT
  Age: 36 Year
  Sex: Male

DRUGS (1)
  1. ARIPIPRAZOLE TABLETS [Suspect]
     Active Substance: ARIPIPRAZOLE
     Dosage: ?          OTHER DOSE:20 TABLETS;?
     Dates: start: 20190410, end: 20190524

REACTIONS (6)
  - Abnormal behaviour [None]
  - Product complaint [None]
  - Paranoia [None]
  - Product substitution issue [None]
  - Product barcode issue [None]
  - Drug ineffective [None]

NARRATIVE: CASE EVENT DATE: 20190413
